FAERS Safety Report 12310604 (Version 1)
Quarter: 2016Q2

REPORT INFORMATION
  Report Type: Spontaneous
  Country: US (occurrence: None)
  Receive Date: 20160426
  Receipt Date: 20160426
  Transmission Date: 20160815
  Serious: Yes (Other)
  Sender: FDA-Public Use
  Company Number: None

PATIENT
  Age: 36 Year
  Sex: Male
  Weight: 89 kg

DRUGS (1)
  1. MYOCOPHENOLIC ACID 360MG TABLETS MYLAN [Suspect]
     Active Substance: MYCOPHENOLIC ACID
     Indication: RENAL TRANSPLANT
     Route: 048
     Dates: start: 20160404

REACTIONS (3)
  - Vomiting [None]
  - Therapy change [None]
  - Nausea [None]

NARRATIVE: CASE EVENT DATE: 20160420
